FAERS Safety Report 7347271-X (Version None)
Quarter: 2011Q1

REPORT INFORMATION
  Report Type: 
  Country: None (occurrence: None)
  Receive Date: 20110311
  Receipt Date: 20110308
  Transmission Date: 20110831
  Serious: No
  Sender: FDA-Public Use
  Company Number: US-PFIZER INC-2011051200

PATIENT
  Sex: Female
  Weight: 16.327 kg

DRUGS (1)
  1. CHILDREN'S ADVIL [Suspect]
     Dosage: UNK
     Route: 048
     Dates: start: 20110307, end: 20110307

REACTIONS (1)
  - ORAL DISCOMFORT [None]
